FAERS Safety Report 5487304-9 (Version None)
Quarter: 2007Q4

REPORT INFORMATION
  Report Type: 
  Country: None (occurrence: None)
  Receive Date: 20071016
  Receipt Date: 20071012
  Transmission Date: 20080405
  Serious: Yes (Disabling)
  Sender: FDA-Public Use
  Company Number: BE-MERCK-0710BEL00012

PATIENT
  Age: 82 Year
  Sex: Male

DRUGS (3)
  1. ZOCOR [Suspect]
     Indication: HYPERCHOLESTEROLAEMIA
     Route: 048
     Dates: start: 20071001, end: 20071001
  2. MOMETASONE FUROATE [Concomitant]
     Route: 065
  3. ASPIRIN [Concomitant]
     Indication: PROPHYLAXIS
     Route: 047

REACTIONS (1)
  - PAIN IN EXTREMITY [None]
